FAERS Safety Report 6657063-2 (Version None)
Quarter: 2010Q1

REPORT INFORMATION
  Report Type: 
  Country: None (occurrence: None)
  Receive Date: 20100330
  Receipt Date: 20100324
  Transmission Date: 20100710
  Serious: Yes (Other)
  Sender: FDA-Public Use
  Company Number: AU-WYE-G05827510

PATIENT
  Sex: Male

DRUGS (3)
  1. PRISTIQ [Suspect]
     Indication: PANIC DISORDER
     Dosage: 50MG DAILY
  2. PRISTIQ [Suspect]
     Indication: MAJOR DEPRESSION
  3. ETHANOL [Suspect]

REACTIONS (4)
  - AGITATION [None]
  - AKATHISIA [None]
  - ALCOHOL POISONING [None]
  - INTENTIONAL SELF-INJURY [None]
